FAERS Safety Report 12879700 (Version 1)
Quarter: 2016Q4

REPORT INFORMATION
  Report Type: Spontaneous
  Country: US (occurrence: US)
  Receive Date: 20161021
  Receipt Date: 20161021
  Transmission Date: 20170207
  Serious: Yes (Hospitalization)
  Sender: FDA-Public Use
  Company Number: None

PATIENT
  Age: 79 Year
  Sex: Female

DRUGS (8)
  1. ALENDRONATE [Concomitant]
     Active Substance: ALENDRONATE SODIUM
  2. LIPITOR [Concomitant]
     Active Substance: ATORVASTATIN CALCIUM
  3. ENBREL [Suspect]
     Active Substance: ETANERCEPT
     Indication: RHEUMATOID ARTHRITIS
     Dosage: 50 MG Q10D SQ
     Route: 058
     Dates: start: 20080717
  4. METHOTREXATE. [Concomitant]
     Active Substance: METHOTREXATE
  5. MULTIPLE VITAMIN [Concomitant]
     Active Substance: VITAMINS
  6. ANASPAZ [Concomitant]
     Active Substance: HYOSCYAMINE SULFATE
  7. FOLIC ACID. [Concomitant]
     Active Substance: FOLIC ACID
  8. HYOSCYAMINE. [Concomitant]
     Active Substance: HYOSCYAMINE

REACTIONS (1)
  - Spinal operation [None]

NARRATIVE: CASE EVENT DATE: 201610
